FAERS Safety Report 11583773 (Version 2)
Quarter: 2017Q3

REPORT INFORMATION
  Report Type: Spontaneous
  Country: US (occurrence: US)
  Receive Date: 20151001
  Receipt Date: 20170725
  Transmission Date: 20171127
  Serious: No
  Sender: FDA-Public Use
  Company Number: US-ROCHE-664859

PATIENT
  Age: 41 Year
  Sex: Male
  Weight: 95.7 kg

DRUGS (2)
  1. INTERFERON ALFA-2A [Suspect]
     Active Substance: INTERFERON ALFA-2A
     Indication: HEPATITIS C
     Route: 065
     Dates: start: 200607, end: 200707
  2. RIBAVIRIN. [Suspect]
     Active Substance: RIBAVIRIN
     Indication: HEPATITIS C
     Route: 065
     Dates: start: 200607, end: 200707

REACTIONS (3)
  - Weight decreased [Recovering/Resolving]
  - Viral infection [Unknown]
  - Liver injury [Unknown]

NARRATIVE: CASE EVENT DATE: 200801
